FAERS Safety Report 5511336-5 (Version None)
Quarter: 2007Q4

REPORT INFORMATION
  Report Type: 
  Country: None (occurrence: None)
  Receive Date: 20071109
  Receipt Date: 20070917
  Transmission Date: 20080405
  Serious: No
  Sender: FDA-Public Use
  Company Number: A0677796A

PATIENT
  Age: 45 Year
  Sex: Female

DRUGS (2)
  1. ALTABAX [Suspect]
     Indication: STAPHYLOCOCCAL INFECTION
     Dosage: 1APP THREE TIMES PER DAY
     Route: 061
     Dates: start: 20070829, end: 20070830
  2. BACTRIM DS [Concomitant]

REACTIONS (2)
  - APPLICATION SITE INFLAMMATION [None]
  - APPLICATION SITE SWELLING [None]
